FAERS Safety Report 10226925 (Version 1)
Quarter: 2014Q2

REPORT INFORMATION
  Report Type: Spontaneous
  Country: BE (occurrence: BE)
  Receive Date: 20140610
  Receipt Date: 20140610
  Transmission Date: 20141212
  Serious: Yes (Death)
  Sender: FDA-Public Use
  Company Number: BE-BEH-2014042990

PATIENT
  Age: 52 Year
  Sex: Female

DRUGS (1)
  1. HIZENTRA [Suspect]
     Route: 058
     Dates: start: 20110624

REACTIONS (1)
  - Death [Fatal]
